FAERS Safety Report 7345632-6 (Version None)
Quarter: 2011Q1

REPORT INFORMATION
  Report Type: 
  Country: None (occurrence: None)
  Receive Date: 20110310
  Receipt Date: 20110304
  Transmission Date: 20110831
  Serious: Yes (Other)
  Sender: FDA-Public Use
  Company Number: A0916775A

PATIENT
  Age: 59 Year
  Sex: Female

DRUGS (8)
  1. LEVOTHYROXINE SODIUM [Concomitant]
  2. AMARYL [Concomitant]
  3. DIOVAN [Concomitant]
  4. PROAIR HFA [Concomitant]
  5. LEVEMIR [Concomitant]
  6. NOVOLOG [Concomitant]
  7. FLOVENT [Suspect]
     Indication: ASTHMA
     Dosage: 2PUFF TWICE PER DAY
     Route: 055
     Dates: start: 20110101
  8. PRAVASTATIN [Concomitant]

REACTIONS (3)
  - CHEST PAIN [None]
  - ANGINA PECTORIS [None]
  - MIDDLE INSOMNIA [None]
